FAERS Safety Report 4741731-3 (Version None)
Quarter: 2005Q3

REPORT INFORMATION
  Report Type: 
  Country: None (occurrence: None)
  Receive Date: 20050810
  Receipt Date: 20050801
  Transmission Date: 20060218
  Serious: No
  Sender: FDA-Public Use
  Company Number: US-MERCK-0508USA00172

PATIENT
  Age: 76 Year
  Sex: Female
  Weight: 55 kg

DRUGS (3)
  1. FOSAMAX [Suspect]
     Indication: OSTEOPOROSIS
     Route: 048
     Dates: start: 20050711, end: 20050726
  2. TRICOR [Concomitant]
     Route: 065
  3. ATACAND [Concomitant]
     Route: 065

REACTIONS (1)
  - CHEST PAIN [None]
